FAERS Safety Report 10729043 (Version 1)
Quarter: 2015Q1

REPORT INFORMATION
  Report Type: Spontaneous
  Country: US (occurrence: US)
  Receive Date: 20150122
  Receipt Date: 20150122
  Transmission Date: 20150721
  Serious: No
  Sender: FDA-Public Use
  Company Number: US-PFIZER INC-2015021999

PATIENT
  Age: 59 Year
  Sex: Male

DRUGS (7)
  1. AZATHIOPRINE. [Concomitant]
     Active Substance: AZATHIOPRINE
     Dosage: 25 MG, DAILY
  2. EPSERA [Concomitant]
     Dosage: 10 MG, UNK
  3. ENTECAVIR. [Concomitant]
     Active Substance: ENTECAVIR
     Dosage: 10 MG, DAILY
  4. URSOFALK [Concomitant]
     Active Substance: URSODIOL
     Dosage: 250 MG, DAILY
  5. SIMVASTATIN. [Concomitant]
     Active Substance: SIMVASTATIN
     Indication: BLOOD CHOLESTEROL INCREASED
     Dosage: UNK
  6. RAPAMUNE [Suspect]
     Active Substance: SIROLIMUS
     Indication: IMMUNOSUPPRESSION
     Dosage: 1 MG ON ODD DAYS AND 2 MG ON EVEN DAYS
     Route: 048
  7. RAPAMUNE [Suspect]
     Active Substance: SIROLIMUS
     Indication: LIVER TRANSPLANT

REACTIONS (2)
  - Drug effect incomplete [Unknown]
  - Product use issue [Unknown]

NARRATIVE: CASE EVENT DATE: 2012
